FAERS Safety Report 24589155 (Version 1)
Quarter: 2024Q4

REPORT INFORMATION
  Report Type: Report from Study
  Country: AR (occurrence: AR)
  Receive Date: 20241107
  Receipt Date: 20241107
  Transmission Date: 20250115
  Serious: Yes (Other)
  Sender: NOVARTIS
  Company Number: AR-002147023-NVSC2024AR150293

PATIENT
  Age: 62 Year
  Sex: Female

DRUGS (2)
  1. SCEMBLIX [Suspect]
     Active Substance: ASCIMINIB HYDROCHLORIDE
     Indication: Chronic myeloid leukaemia
     Dosage: 2 OF 40 MG, Q12H
     Route: 065
     Dates: start: 20240713
  2. SCEMBLIX [Suspect]
     Active Substance: ASCIMINIB HYDROCHLORIDE
     Dosage: 20 MG, 1 EVERY 12 HOURS
     Route: 048

REACTIONS (15)
  - Urinary tract infection [Unknown]
  - Azotaemia [Unknown]
  - Urticaria [Recovered/Resolved]
  - Flatulence [Unknown]
  - Bacterial infection [Unknown]
  - Escherichia infection [Unknown]
  - Abdominal pain [Unknown]
  - Dysuria [Unknown]
  - Malaise [Unknown]
  - Drug ineffective [Unknown]
  - Eosinophil count abnormal [Unknown]
  - Blood urea increased [Unknown]
  - Lipase increased [Unknown]
  - Low density lipoprotein increased [Unknown]
  - Blood creatine phosphokinase decreased [Unknown]

NARRATIVE: CASE EVENT DATE: 20240714
